FAERS Safety Report 21372824 (Version 9)
Quarter: 2024Q1

REPORT INFORMATION
  Report Type: Report from Study
  Country: US (occurrence: US)
  Receive Date: 20220924
  Receipt Date: 20240209
  Transmission Date: 20240410
  Serious: Yes (Hospitalization, Other)
  Sender: FDA-Public Use
  Company Number: US-ABBVIE-22K-163-4414067-00

PATIENT
  Sex: Male
  Weight: 82 kg

DRUGS (9)
  1. IMBRUVICA [Suspect]
     Active Substance: IBRUTINIB
     Indication: B-cell lymphoma
     Dosage: 420 MILLIGRAMS
     Route: 048
     Dates: start: 20180106, end: 201804
  2. CLONIDINE [Concomitant]
     Active Substance: CLONIDINE
     Indication: Product used for unknown indication
  3. IMBRUVICA [Suspect]
     Active Substance: IBRUTINIB
     Indication: B-cell lymphoma
     Route: 048
     Dates: start: 20180405
  4. IMBRUVICA [Suspect]
     Active Substance: IBRUTINIB
     Indication: B-cell lymphoma
     Route: 048
  5. IMBRUVICA [Suspect]
     Active Substance: IBRUTINIB
     Indication: B-cell lymphoma
     Route: 048
     Dates: start: 20180104
  6. IMBRUVICA [Suspect]
     Active Substance: IBRUTINIB
     Indication: B-cell lymphoma
     Route: 048
     Dates: start: 20221003
  7. IMBRUVICA [Suspect]
     Active Substance: IBRUTINIB
     Indication: B-cell lymphoma
     Route: 048
     Dates: start: 201801
  8. IMBRUVICA [Suspect]
     Active Substance: IBRUTINIB
     Indication: B-cell lymphoma
     Route: 048
  9. AMLODIPINE [Concomitant]
     Active Substance: AMLODIPINE BESYLATE
     Indication: Product used for unknown indication

REACTIONS (19)
  - Nasal operation [Unknown]
  - Pain in extremity [Unknown]
  - Food poisoning [Unknown]
  - Contusion [Unknown]
  - Nocturia [Unknown]
  - Renal function test abnormal [Unknown]
  - Dry mouth [Unknown]
  - Cerebrovascular accident [Unknown]
  - Blood pressure increased [Unknown]
  - Prostatic disorder [Unknown]
  - Fatigue [Unknown]
  - Peripheral swelling [Unknown]
  - Fall [Unknown]
  - Arthritis [Unknown]
  - Movement disorder [Unknown]
  - Frequent bowel movements [Unknown]
  - Blood pressure increased [Unknown]
  - Rash [Unknown]
  - Spondylitis [Unknown]
